FAERS Safety Report 4401909-5 (Version None)
Quarter: 2004Q3

REPORT INFORMATION
  Report Type: 
  Country: None (occurrence: None)
  Receive Date: 20040714
  Receipt Date: 20040628
  Transmission Date: 20050211
  Serious: Yes (Other)
  Sender: FDA-Public Use
  Company Number: US97110472A

PATIENT
  Age: 42 Year
  Sex: Female
  Weight: 79 kg

DRUGS (12)
  1. HUMALOG [Suspect]
     Indication: DIABETES MELLITUS
     Dates: start: 19960101
  2. HUMULIN L [Suspect]
     Indication: DIABETES MELLITUS INSULIN-DEPENDENT
     Dosage: 24 U/ 1 DAY
     Dates: start: 19940101
  3. HUMULIN R [Suspect]
     Indication: DIABETES MELLITUS INSULIN-DEPENDENT
     Dosage: 2 U/ 2 DAY
     Dates: start: 19940101
  4. REGULAR ILETIN II (PORK) [Suspect]
     Indication: DIABETES MELLITUS
     Dates: start: 19720101
  5. LENTE ILETIN II (PORK) [Suspect]
     Indication: DIABETES MELLITUS
     Dates: start: 19720101
  6. DURATUSS [Concomitant]
  7. VITAMIN NOS [Concomitant]
  8. ULTRAM [Concomitant]
  9. NASALCROM (CHROMOGLICATE SODIUM) [Concomitant]
  10. FLONASE [Concomitant]
  11. BECONASE (BECLOMETASONE DIPROPIONATE) [Concomitant]
  12. LOESTRIN (ANOVLAR) [Concomitant]

REACTIONS (8)
  - DIABETES MELLITUS INADEQUATE CONTROL [None]
  - GLYCOSYLATED HAEMOGLOBIN INCREASED [None]
  - INCOHERENT [None]
  - INJECTION SITE PAIN [None]
  - MALABSORPTION FROM INJECTION SITE [None]
  - MEDICATION ERROR [None]
  - PHARMACEUTICAL PRODUCT COMPLAINT [None]
  - ROAD TRAFFIC ACCIDENT [None]
